FAERS Safety Report 7506428-5 (Version None)
Quarter: 2011Q2

REPORT INFORMATION
  Report Type: 
  Country: None (occurrence: None)
  Receive Date: 20110526
  Receipt Date: 20110523
  Transmission Date: 20111010
  Serious: No
  Sender: FDA-Public Use
  Company Number: US-TEVA-283303USA

PATIENT
  Sex: Female

DRUGS (1)
  1. COPAXONE [Suspect]
     Indication: MULTIPLE SCLEROSIS
     Route: 058

REACTIONS (6)
  - VISION BLURRED [None]
  - SWELLING [None]
  - BURNING SENSATION [None]
  - MOVEMENT DISORDER [None]
  - DRUG HYPERSENSITIVITY [None]
  - MENTAL IMPAIRMENT [None]
